FAERS Safety Report 8992356 (Version 4)
Quarter: 2013Q1

REPORT INFORMATION
  Report Type: Report from Study
  Country: JP (occurrence: JP)
  Receive Date: 20121231
  Receipt Date: 20130308
  Transmission Date: 20140127
  Serious: No
  Sender: FDA-Public Use
  Company Number: JP-JNJFOC-20120402043

PATIENT
  Age: 42 Year
  Sex: Female
  Weight: 48 kg

DRUGS (25)
  1. DUROTEP MT [Suspect]
     Indication: PAIN
     Route: 062
     Dates: start: 20120726
  2. DUROTEP MT [Suspect]
     Indication: PAIN
     Route: 062
     Dates: start: 20120210, end: 20120725
  3. DUROTEP MT [Suspect]
     Indication: PAIN
     Route: 062
     Dates: start: 20111214, end: 20120209
  4. DUROTEP MT [Suspect]
     Indication: PAIN
     Route: 062
     Dates: start: 20111115, end: 20111213
  5. DUROTEP MT [Suspect]
     Indication: PAIN
     Route: 062
     Dates: start: 20111022, end: 20111114
  6. TRAMADOL/APAP [Concomitant]
     Route: 065
     Dates: end: 20111021
  7. CALONAL [Concomitant]
     Route: 048
     Dates: start: 20111115
  8. CALONAL [Concomitant]
     Route: 048
     Dates: start: 20111022, end: 20111114
  9. SELBEX [Concomitant]
     Route: 048
  10. CORTRIL [Concomitant]
     Route: 048
  11. LYRICA [Concomitant]
     Route: 048
     Dates: start: 20111022, end: 20111114
  12. LYRICA [Concomitant]
     Route: 048
     Dates: start: 20111214
  13. LYRICA [Concomitant]
     Route: 048
     Dates: start: 20111115, end: 20111213
  14. CYMBALTA [Concomitant]
     Route: 048
     Dates: start: 20111214
  15. CYMBALTA [Concomitant]
     Route: 048
     Dates: end: 20111114
  16. CYMBALTA [Concomitant]
     Route: 048
     Dates: start: 20111115, end: 20111213
  17. SOLITA-T2 [Concomitant]
     Route: 048
  18. UNKNOWN MEDICATION [Concomitant]
     Route: 048
     Dates: start: 20111022
  19. MIGSIS [Concomitant]
     Route: 048
     Dates: start: 20111115
  20. LACTEC [Concomitant]
     Route: 048
     Dates: start: 20111115, end: 20120111
  21. DEPAS [Concomitant]
     Route: 048
  22. NAUZELIN [Concomitant]
     Indication: NAUSEA
     Route: 054
     Dates: start: 20120918
  23. TELEMINSOFT [Concomitant]
     Route: 054
     Dates: start: 20120918, end: 20121016
  24. LAXOBERON [Concomitant]
     Indication: CONSTIPATION
     Dosage: AS PER NECESSARY
     Route: 048
     Dates: start: 20120501
  25. MOHRUS TAPE [Concomitant]
     Indication: PAIN
     Route: 062
     Dates: start: 20120111, end: 20120501

REACTIONS (3)
  - Constipation [Not Recovered/Not Resolved]
  - Nausea [Not Recovered/Not Resolved]
  - Incorrect drug administration duration [Unknown]
